FAERS Safety Report 6748123-6 (Version None)
Quarter: 2010Q2

REPORT INFORMATION
  Report Type: 
  Country: None (occurrence: None)
  Receive Date: 20100531
  Receipt Date: 20100526
  Transmission Date: 20101027
  Serious: Yes (Other)
  Sender: FDA-Public Use
  Company Number: AT-BRISTOL-MYERS SQUIBB COMPANY-15120991

PATIENT
  Age: 64 Year
  Sex: Female

DRUGS (1)
  1. MITOMYCIN-C [Suspect]
     Indication: MALIGNANT MELANOMA

REACTIONS (1)
  - CATARACT [None]
